FAERS Safety Report 4622144-1 (Version None)
Quarter: 2005Q1

REPORT INFORMATION
  Report Type: 
  Country: None (occurrence: None)
  Receive Date: 20050328
  Receipt Date: 20050322
  Transmission Date: 20050727
  Serious: Yes (Life-Threatening, Hospitalization, Other)
  Sender: FDA-Public Use
  Company Number: 2005-03-0709

PATIENT
  Age: 93 Year
  Sex: Female

DRUGS (12)
  1. GENTALLINE (GENTAMICIN SULFATE) INJECTABLE SOLUTION [Suspect]
     Indication: LUNG DISORDER
     Dosage: 80 MG QD
     Dates: start: 20050216, end: 20050218
  2. GENTALLINE (GENTAMICIN SULFATE) INJECTABLE SOLUTION [Suspect]
     Indication: LUNG DISORDER
     Dosage: 80 MD QD
     Dates: start: 20050216, end: 20050216
  3. GENTALLINE (GENTAMICIN SULFATE) INJECTABLE SOLUTION [Suspect]
     Indication: LUNG DISORDER
     Dosage: 80 MG BID
     Dates: start: 20050218, end: 20050218
  4. CLAMOXYL INJECTABLE [Suspect]
     Indication: LUNG DISORDER
     Dosage: 2 MG QD INTRAMUSCULAR
     Route: 030
     Dates: start: 20050210, end: 20050217
  5. PREVISCAN TABLETS [Suspect]
     Dosage: 5 MG QD ORAL
     Route: 048
     Dates: start: 20040415, end: 20050217
  6. KARDEGIC SACHETS (ACETYLSALICYLATE LYSINE) ORAL POWDER [Suspect]
     Dosage: 160 MG QD ORAL
     Route: 048
     Dates: start: 20041126, end: 20050217
  7. DIGITALINE ^NATIVELLE^ TABLETS [Concomitant]
  8. LASIX [Concomitant]
  9. ZESTRIL [Concomitant]
  10. XANAX [Concomitant]
  11. DIAMICRON [Concomitant]
  12. TENORMIN [Concomitant]

REACTIONS (6)
  - ANAEMIA [None]
  - DRUG INTERACTION [None]
  - DRUG LEVEL INCREASED [None]
  - HAEMOGLOBIN DECREASED [None]
  - INTERNATIONAL NORMALISED RATIO ABNORMAL [None]
  - MELAENA [None]
